FAERS Safety Report 25494433 (Version 1)
Quarter: 2025Q2

REPORT INFORMATION
  Report Type: Spontaneous
  Country: US (occurrence: US)
  Receive Date: 20250630
  Receipt Date: 20250630
  Transmission Date: 20250716
  Serious: No
  Sender: MERCK SHARP & DOHME LLC
  Company Number: US-009507513-2294165

PATIENT
  Sex: Male
  Weight: 85.729 kg

DRUGS (19)
  1. WINREVAIR [Suspect]
     Active Substance: SOTATERCEPT-CSRK
     Indication: Product used for unknown indication
  2. WINREVAIR [Suspect]
     Active Substance: SOTATERCEPT-CSRK
  3. WINREVAIR [Suspect]
     Active Substance: SOTATERCEPT-CSRK
  4. WINREVAIR [Suspect]
     Active Substance: SOTATERCEPT-CSRK
  5. REMODULIN [Suspect]
     Active Substance: TREPROSTINIL
     Indication: Pulmonary arterial hypertension
     Route: 041
  6. REMODULIN [Suspect]
     Active Substance: TREPROSTINIL
     Indication: Pulmonary arterial hypertension
     Route: 041
     Dates: start: 20240126
  7. MELATONIN [Concomitant]
     Active Substance: MELATONIN
  8. Tylenol extra strength (Paracetamol) [Concomitant]
  9. LASIX [Concomitant]
     Active Substance: FUROSEMIDE
  10. WARFARIN SODIUM [Concomitant]
     Active Substance: WARFARIN SODIUM
  11. POTASSIUM CHLORIDE [Concomitant]
     Active Substance: POTASSIUM CHLORIDE
  12. PREVACID [Concomitant]
     Active Substance: LANSOPRAZOLE
  13. LETAIRIS [Concomitant]
     Active Substance: AMBRISENTAN
  14. Loxapine (Loxapine succinate) [Concomitant]
  15. REVATIO [Concomitant]
     Active Substance: SILDENAFIL CITRATE
  16. Loperamide (Loperamide hydrochloride) [Concomitant]
  17. LEXAPRO [Concomitant]
     Active Substance: ESCITALOPRAM OXALATE
  18. Simethicone (Simeticone) [Concomitant]
  19. VITAMIN D3 [Concomitant]
     Active Substance: CHOLECALCIFEROL

REACTIONS (1)
  - Hormone level abnormal [Recovering/Resolving]
